FAERS Safety Report 7361689-0 (Version None)
Quarter: 2011Q1

REPORT INFORMATION
  Report Type: 
  Country: None (occurrence: None)
  Receive Date: 20110318
  Receipt Date: 20110310
  Transmission Date: 20110831
  Serious: Yes (Hospitalization, Other)
  Sender: FDA-Public Use
  Company Number: US-JNJFOC-20101005175

PATIENT
  Sex: Female

DRUGS (9)
  1. METHYLPREDNISOLONE [Suspect]
     Indication: INFLAMMATION
     Route: 065
  2. LEVAQUIN [Suspect]
     Indication: UPPER RESPIRATORY TRACT INFECTION
     Route: 048
  3. LEVAQUIN [Suspect]
     Route: 048
  4. OFLOXACIN [Suspect]
     Indication: BACTERIAL INFECTION
     Route: 065
  5. LEVAQUIN [Suspect]
     Route: 048
  6. PREDNISONE [Suspect]
     Indication: INFLAMMATION
     Route: 065
  7. LEVAQUIN [Suspect]
     Route: 048
  8. LEVAQUIN [Suspect]
     Indication: BRONCHITIS
     Route: 048
  9. LEVAQUIN [Suspect]
     Route: 048

REACTIONS (6)
  - ROTATOR CUFF SYNDROME [None]
  - ANXIETY [None]
  - DEPRESSION [None]
  - JOINT INJURY [None]
  - TENDONITIS [None]
  - BURSITIS [None]
